FAERS Safety Report 5179014-2 (Version None)
Quarter: 2006Q4

REPORT INFORMATION
  Report Type: 
  Country: None (occurrence: None)
  Receive Date: 20061214
  Receipt Date: 20061214
  Transmission Date: 20070319
  Serious: Yes (Life-Threatening, Hospitalization, Other)
  Sender: FDA-Public Use
  Company Number: None

PATIENT
  Age: 21 Year
  Sex: Female

DRUGS (2)
  1. KETOROLAC TROMETHAMINE [Suspect]
     Indication: COMPLICATION OF DELIVERY
     Dosage: 30MG EVERY 6 HOURS PRN  IV BOLUS
     Route: 040
     Dates: start: 20061209, end: 20061210
  2. KETOROLAC TROMETHAMINE [Suspect]
     Indication: PAIN
     Dosage: 30MG EVERY 6 HOURS PRN  IV BOLUS
     Route: 040
     Dates: start: 20061209, end: 20061210

REACTIONS (1)
  - RENAL FAILURE ACUTE [None]
